FAERS Safety Report 24309269 (Version 1)
Quarter: 2024Q3

REPORT INFORMATION
  Report Type: Spontaneous
  Country: US (occurrence: US)
  Receive Date: 20240911
  Receipt Date: 20240911
  Transmission Date: 20241017
  Serious: Yes (Other)
  Sender: BRISTOL MYERS SQUIBB
  Company Number: US-BRISTOL-MYERS SQUIBB COMPANY-2024-141293

PATIENT
  Age: 31 Year
  Sex: Female

DRUGS (1)
  1. THALOMID [Suspect]
     Active Substance: THALIDOMIDE
     Indication: Leprosy
     Dosage: 1 TIME NIGHTLY
     Route: 048
     Dates: start: 202408

REACTIONS (2)
  - Leprosy [Unknown]
  - Condition aggravated [Unknown]
